FAERS Safety Report 8785588 (Version 2)
Quarter: 2012Q4

REPORT INFORMATION
  Report Type: 
  Country: JP (occurrence: JP)
  Receive Date: 20120914
  Receipt Date: 20121112
  Transmission Date: 20130627
  Serious: Yes (Death)
  Sender: FDA-Public Use
  Company Number: JP-ALEXION PHARMACEUTICALS INC.-A201201694

PATIENT
  Age: 71 Year
  Sex: Female

DRUGS (12)
  1. SOLIRIS 300MG [Suspect]
     Indication: PAROXYSMAL NOCTURNAL HAEMOGLOBINURIA
     Dosage: 600 mg, qw
     Route: 042
  2. SOLIRIS 300MG [Suspect]
     Indication: OESOPHAGEAL CARCINOMA
     Dosage: 900 mg, q2w
     Route: 042
     Dates: start: 20120803, end: 20120830
  3. PREDNISOLONE [Concomitant]
     Dosage: 10 mg every 2nd day
     Dates: start: 20040220, end: 20120310
  4. PREDNISOLONE [Concomitant]
     Dosage: 5 mg every 2nd day
     Dates: start: 20120312, end: 20120806
  5. PREDNISOLONE [Concomitant]
     Dosage: 2.5 mg every 2nd day
     Dates: start: 20120808, end: 20120821
  6. WARFARIN [Concomitant]
     Dosage: 1 mg, qd
  7. OMEPRAL [Concomitant]
     Dosage: 20 mg, qd
     Dates: start: 200404
  8. DIOVAN [Concomitant]
     Dosage: 20 mg, qd
  9. COSPANON [Concomitant]
     Dosage: 120 mg, qd
     Dates: start: 20050315
  10. LENDORMIN [Concomitant]
     Dosage: 0.25 mg, qd
  11. BLOOD TRANSFUSION, AUXILIARY PRODUCTS [Concomitant]
     Indication: TRANSFUSION
     Dosage: 2 units, UNK
     Dates: start: 201202, end: 201202
  12. BLOOD TRANSFUSION, AUXILIARY PRODUCTS [Concomitant]
     Dosage: 4 units, UNK
     Dates: start: 201207, end: 201207

REACTIONS (3)
  - Oesophageal carcinoma [Fatal]
  - Condition aggravated [Fatal]
  - Acute respiratory failure [Fatal]
